FAERS Safety Report 4435683-3 (Version None)
Quarter: 2004Q3

REPORT INFORMATION
  Report Type: 
  Country: None (occurrence: None)
  Receive Date: 20040726
  Receipt Date: 20040209
  Transmission Date: 20050211
  Serious: Yes (Other)
  Sender: FDA-Public Use
  Company Number: US_010871449

PATIENT
  Age: 54 Year
  Sex: Female

DRUGS (4)
  1. FORTEO [Suspect]
     Indication: OSTEOPOROSIS
     Dates: start: 20040130
  2. PHENOBARBITAL TAB [Suspect]
     Indication: EPILEPSY
     Dosage: 100 MG/AT BEDTIME
  3. TEGRETOL [Concomitant]
  4. DILANTIN [Concomitant]

REACTIONS (27)
  - ABDOMINAL DISTENSION [None]
  - ABDOMINAL PAIN [None]
  - ABNORMAL DREAMS [None]
  - BACK PAIN [None]
  - CHEST PAIN [None]
  - CHOKING [None]
  - COUGH [None]
  - DISORIENTATION [None]
  - EYE PRURITUS [None]
  - HALLUCINATION [None]
  - HEADACHE [None]
  - HYPERHIDROSIS [None]
  - HYPERVENTILATION [None]
  - INSOMNIA [None]
  - LACRIMATION INCREASED [None]
  - MUSCLE TWITCHING [None]
  - OROPHARYNGEAL SWELLING [None]
  - PALPITATIONS [None]
  - PARAESTHESIA [None]
  - PHARYNGOLARYNGEAL PAIN [None]
  - PHOBIA [None]
  - POLLAKIURIA [None]
  - RHINORRHOEA [None]
  - SWELLING [None]
  - THROAT IRRITATION [None]
  - TINNITUS [None]
  - TREMOR [None]
